FAERS Safety Report 17507299 (Version 1)
Quarter: 2020Q1

REPORT INFORMATION
  Report Type: Spontaneous
  Country: GB (occurrence: GB)
  Receive Date: 20200306
  Receipt Date: 20200306
  Transmission Date: 20200409
  Serious: Yes (Other)
  Sender: FDA-Public Use
  Company Number: GB-TEVA-2020-GB-1195439

PATIENT
  Age: 28 Year
  Sex: Female
  Weight: 74 kg

DRUGS (6)
  1. OMEPRAZOLE. [Concomitant]
     Active Substance: OMEPRAZOLE
     Dosage: FOR 3 DAYS, 2 DF
     Dates: start: 20200108
  2. CLARITHROMYCIN. [Suspect]
     Active Substance: CLARITHROMYCIN
     Dosage: 500 MG
     Dates: start: 20200108
  3. AMOXICILLIN. [Concomitant]
     Active Substance: AMOXICILLIN
     Dosage: FOR 7 DAYS, 4DF
     Dates: start: 20200108
  4. CLARITHROMYCIN. [Concomitant]
     Active Substance: CLARITHROMYCIN
     Dosage: 2 DF
     Dates: start: 20191224, end: 20191231
  5. METRONIDAZOLE. [Concomitant]
     Active Substance: METRONIDAZOLE
     Dosage: 2 DF
     Dates: start: 20200108, end: 20200109
  6. SALBUTAMOL [Concomitant]
     Active Substance: ALBUTEROL
     Dosage: 15 MINUTES BEFORE EXERCISE, 2 DF
     Route: 055
     Dates: start: 20191102

REACTIONS (2)
  - Swelling [Unknown]
  - Chest pain [Recovered/Resolved]

NARRATIVE: CASE EVENT DATE: 20200108
